FAERS Safety Report 20606512 (Version 4)
Quarter: 2024Q1

REPORT INFORMATION
  Report Type: Spontaneous
  Country: PT (occurrence: PT)
  Receive Date: 20220317
  Receipt Date: 20240112
  Transmission Date: 20240409
  Serious: Yes (Life-Threatening, Hospitalization, Other)
  Sender: FDA-Public Use
  Company Number: PT-ROCHE-3013702

PATIENT
  Age: 64 Year
  Sex: Female

DRUGS (11)
  1. MYCOPHENOLATE MOFETIL [Suspect]
     Active Substance: MYCOPHENOLATE MOFETIL
     Indication: Immunosuppression
     Dosage: UNK
     Route: 065
  2. MYCOPHENOLATE MOFETIL [Suspect]
     Active Substance: MYCOPHENOLATE MOFETIL
     Indication: Renal transplant
  3. PREDNISOLONE [Suspect]
     Active Substance: PREDNISOLONE
     Indication: Immunosuppression
     Dosage: UNK
     Route: 065
  4. PREDNISOLONE [Suspect]
     Active Substance: PREDNISOLONE
     Indication: Renal transplant
  5. TACROLIMUS [Suspect]
     Active Substance: TACROLIMUS
     Indication: Immunosuppression
     Dosage: UNK
     Route: 065
  6. TACROLIMUS [Suspect]
     Active Substance: TACROLIMUS
     Indication: Renal transplant
  7. BASILIXIMAB [Suspect]
     Active Substance: BASILIXIMAB
     Indication: Immunosuppression
     Dosage: UNK
     Route: 065
  8. BASILIXIMAB [Suspect]
     Active Substance: BASILIXIMAB
     Indication: Renal transplant
  9. GANCICLOVIR [Suspect]
     Active Substance: GANCICLOVIR
     Indication: Herpes sepsis
     Dosage: UNK
     Route: 065
  10. VALGANCICLOVIR [Concomitant]
     Active Substance: VALGANCICLOVIR
     Indication: Antiviral prophylaxis
     Dosage: 450 MILLIGRAM (0.33 WEEK), THRICE WEEKLY
     Route: 065
  11. CYCLOSPORINE [Concomitant]
     Active Substance: CYCLOSPORINE
     Dosage: UNK
     Route: 065

REACTIONS (15)
  - Hepatic infection [Recovered/Resolved]
  - Enterocolitis [Recovered/Resolved]
  - Multi-organ disorder [Recovered/Resolved]
  - Intestinal pseudo-obstruction [Recovered/Resolved]
  - Impaired gastric emptying [Recovered/Resolved]
  - Human herpesvirus 6 encephalitis [Recovering/Resolving]
  - Enterocolitis viral [Recovered/Resolved]
  - Human herpesvirus 6 infection reactivation [Recovered/Resolved]
  - Pneumonia aspiration [Recovered/Resolved]
  - Cholestasis [Recovered/Resolved]
  - Human herpesvirus 6 infection [Unknown]
  - Clostridium difficile infection [Unknown]
  - Encephalitis viral [Recovering/Resolving]
  - Immunosuppressant drug level increased [Unknown]
  - Off label use [Unknown]
